FAERS Safety Report 15979540 (Version 2)
Quarter: 2019Q1

REPORT INFORMATION
  Report Type: Spontaneous
  Country: US (occurrence: US)
  Receive Date: 20190219
  Receipt Date: 20190225
  Transmission Date: 20190418
  Serious: No
  Sender: FDA-Public Use
  Company Number: US-PFIZER INC-2019066234

PATIENT
  Age: 57 Year
  Sex: Male
  Weight: 181.4 kg

DRUGS (2)
  1. PROTONIX [Suspect]
     Active Substance: PANTOPRAZOLE SODIUM
     Dosage: UNK
  2. IODINE. [Suspect]
     Active Substance: IODINE

REACTIONS (1)
  - Drug hypersensitivity [Unknown]
